FAERS Safety Report 24716075 (Version 1)
Quarter: 2024Q4

REPORT INFORMATION
  Report Type: Spontaneous
  Country: US (occurrence: US)
  Receive Date: 20241210
  Receipt Date: 20241210
  Transmission Date: 20250115
  Serious: Yes (Death)
  Sender: SS PHARMA LLC
  Company Number: US-SSPHARMA-2024USSSP00085

PATIENT
  Age: 10 Month
  Sex: Male

DRUGS (7)
  1. BROMOCRIPTINE MESYLATE [Suspect]
     Active Substance: BROMOCRIPTINE MESYLATE
     Indication: Neuroleptic malignant syndrome
  2. BROMOCRIPTINE MESYLATE [Suspect]
     Active Substance: BROMOCRIPTINE MESYLATE
  3. ACETAMINOPHEN [Concomitant]
     Active Substance: ACETAMINOPHEN
     Indication: Neuroleptic malignant syndrome
  4. LORAZEPAM [Concomitant]
     Active Substance: LORAZEPAM
     Indication: Neuroleptic malignant syndrome
  5. MORPHINE [Concomitant]
     Active Substance: MORPHINE
     Indication: Neuroleptic malignant syndrome
  6. MIDAZOLAM [Concomitant]
     Active Substance: MIDAZOLAM
     Indication: Neuroleptic malignant syndrome
  7. NICARDIPINE [Concomitant]
     Active Substance: NICARDIPINE
     Indication: Neuroleptic malignant syndrome

REACTIONS (1)
  - Drug ineffective for unapproved indication [Fatal]
